FAERS Safety Report 6533552-6 (Version None)
Quarter: 2010Q1

REPORT INFORMATION
  Report Type: 
  Country: None (occurrence: None)
  Receive Date: 20100111
  Receipt Date: 20100105
  Transmission Date: 20100710
  Serious: Yes (Death)
  Sender: FDA-Public Use
  Company Number: US-ASTRAZENECA-2010SE00801

PATIENT
  Age: 44 Year
  Sex: Female

DRUGS (8)
  1. METOPROLOL TARTRATE [Suspect]
     Route: 048
  2. METFORMIN HYDROCHLORIDE [Suspect]
     Route: 048
  3. TOPIRAMATE [Suspect]
     Route: 048
  4. CARDIAC GLYCOSIDE [Suspect]
     Route: 048
  5. INSULIN [Suspect]
     Route: 048
  6. BARBITURATES [Suspect]
     Route: 048
  7. COCAINE [Suspect]
     Route: 048
  8. BENZODIAZEPINE [Suspect]
     Route: 048

REACTIONS (4)
  - CARDIAC ARREST [None]
  - COMPLETED SUICIDE [None]
  - DRUG TOXICITY [None]
  - RESPIRATORY ARREST [None]
